FAERS Safety Report 19749782 (Version 9)
Quarter: 2022Q1

REPORT INFORMATION
  Report Type: Spontaneous
  Country: AU (occurrence: AU)
  Receive Date: 20210826
  Receipt Date: 20220201
  Transmission Date: 20220423
  Serious: Yes (Life-Threatening, Hospitalization, Other)
  Sender: FDA-Public Use
  Company Number: AU-ACCORD-236384

PATIENT
  Age: 72 Year
  Sex: Female
  Weight: 70.90 kg

DRUGS (24)
  1. CARBOPLATIN [Suspect]
     Active Substance: CARBOPLATIN
     Indication: Diffuse large B-cell lymphoma stage IV
     Dosage: DAILY DOSE 5 AUC,  FREQUENCY : 1Q3W
     Route: 042
     Dates: start: 20210804
  2. CYTARABINE [Suspect]
     Active Substance: CYTARABINE
     Indication: Diffuse large B-cell lymphoma stage IV
     Dosage: 1Q3W
     Route: 042
     Dates: start: 20210804, end: 20210804
  3. OXALIPLATIN [Suspect]
     Active Substance: OXALIPLATIN
     Indication: Diffuse large B-cell lymphoma stage IV
     Route: 042
  4. EPCORITAMAB [Suspect]
     Active Substance: EPCORITAMAB
     Indication: Diffuse large B-cell lymphoma stage IV
     Dosage: PRIMING DOSE: 0.16 MILLIGRAM, SINGLE
     Route: 058
     Dates: start: 20210804, end: 20210804
  5. DEXAMETHASONE [Suspect]
     Active Substance: DEXAMETHASONE
     Indication: Diffuse large B-cell lymphoma stage IV
     Dosage: 16 MILLIGRAM, 1Q3W
     Route: 042
     Dates: start: 20210812
  6. RITUXIMAB [Suspect]
     Active Substance: RITUXIMAB
     Indication: Diffuse large B-cell lymphoma stage IV
     Dosage: 375 MILLIGRAM/SQ. METER, 1Q3W
     Route: 042
     Dates: start: 20210804
  7. PHENERGAN [Concomitant]
     Active Substance: PROMETHAZINE HYDROCHLORIDE
     Dosage: STRENGTH: 25MG
     Route: 042
     Dates: start: 20210811, end: 20210811
  8. ACETAMINOPHEN [Concomitant]
     Active Substance: ACETAMINOPHEN
     Dates: start: 20210811, end: 20210811
  9. ESCITALOPRAM [Concomitant]
     Active Substance: ESCITALOPRAM OXALATE
     Dates: start: 2020
  10. ESOMEPRAZOLE [Concomitant]
     Active Substance: ESOMEPRAZOLE
     Dates: start: 2020
  11. METOCLOPRAMIDE [Concomitant]
     Active Substance: METOCLOPRAMIDE
     Dates: start: 2020
  12. MIRTAZAPINE [Concomitant]
     Active Substance: MIRTAZAPINE
     Dates: start: 2020
  13. PRAMIN [Concomitant]
     Dates: start: 2020
  14. ROSUVASTATIN [Concomitant]
     Active Substance: ROSUVASTATIN
     Dates: start: 2018
  15. VALACYCLOVIR HYDROCHLORIDE [Concomitant]
     Active Substance: VALACYCLOVIR HYDROCHLORIDE
     Dates: start: 2021
  16. LIPEGFILGRASTIM [Concomitant]
     Active Substance: LIPEGFILGRASTIM
     Dates: start: 20210807, end: 20210807
  17. PIPERACILLIN SODIUM\TAZOBACTAM SODIUM [Concomitant]
     Active Substance: PIPERACILLIN SODIUM\TAZOBACTAM SODIUM
     Dates: start: 20210801, end: 20210803
  18. LORATADINE [Concomitant]
     Active Substance: LORATADINE
     Dosage: STRENGTH: 10MG
     Route: 048
     Dates: start: 20210804, end: 20210804
  19. FLUCONAZOLE [Concomitant]
     Active Substance: FLUCONAZOLE
     Dates: start: 20210928
  20. FUROSEMIDE [Concomitant]
     Active Substance: FUROSEMIDE
     Dates: start: 20210907, end: 20210907
  21. MAGNESIUM ASPARTATE [Concomitant]
     Active Substance: MAGNESIUM ASPARTATE
     Dates: start: 20210928
  22. METRONIDAZOLE [Concomitant]
     Active Substance: METRONIDAZOLE
     Dates: start: 20210914, end: 20210928
  23. PANADOL [Concomitant]
     Active Substance: ACETAMINOPHEN
     Dates: start: 20210907, end: 20210907
  24. DEXAMETHASONE [Concomitant]
     Active Substance: DEXAMETHASONE
     Dates: start: 20210811, end: 20210903

REACTIONS (3)
  - Cytokine release syndrome [Recovered/Resolved]
  - Streptococcal endocarditis [Recovered/Resolved]
  - Streptococcal sepsis [Recovered/Resolved]

NARRATIVE: CASE EVENT DATE: 20210805
